FAERS Safety Report 9405031 (Version 1)
Quarter: 2013Q3

REPORT INFORMATION
  Report Type: Spontaneous
  Country: GB (occurrence: GB)
  Receive Date: 20130715
  Receipt Date: 20130715
  Transmission Date: 20140515
  Serious: Yes (Other)
  Sender: FDA-Public Use
  Company Number: GB-003966

PATIENT
  Age: 17 Year
  Sex: Male

DRUGS (15)
  1. 6-THIOGUANINE [Suspect]
  2. 6-MERCAPTOPURINE [Suspect]
  3. CO-TRIMOXAZOLE [Suspect]
  4. RITUXIMAB (RITUXIMAB) [Suspect]
  5. DOXORUBICIN (DOXORUBICIN) (DOXORUBICIN) [Suspect]
  6. VINCRISTINE (VINCRISTINE) (UNKNOWN) [Suspect]
  7. PREDNISOLONE (PREDNISOLONE) [Suspect]
  8. ARA-C (CYTARABINE) [Suspect]
  9. VP-16 [Suspect]
  10. METHOTREXATE (METHOTREXATE) [Suspect]
     Route: 037
  11. TACROLIMUS (TACROLIMUS) [Suspect]
  12. ACYCLOVIR (ACICLOVIR) (ACICLOVIR) [Suspect]
  13. ITRACONAZOLE [Suspect]
  14. DEXRAZOXANE [Suspect]
  15. CAELYX [Suspect]

REACTIONS (10)
  - Weight decreased [None]
  - Malaise [None]
  - Lymphadenopathy [None]
  - Night sweats [None]
  - Abdominal pain [None]
  - Spleen disorder [None]
  - Post transplant lymphoproliferative disorder [None]
  - Viral infection [None]
  - Seroconversion test positive [None]
  - Neutropenia [None]
